FAERS Safety Report 5812181-3 (Version None)
Quarter: 2008Q3

REPORT INFORMATION
  Report Type: 
  Country: None (occurrence: None)
  Receive Date: 20080714
  Receipt Date: 20080630
  Transmission Date: 20090109
  Serious: Yes (Death)
  Sender: FDA-Public Use
  Company Number: WAES 0807USA00741

PATIENT

DRUGS (3)
  1. DECADRON [Suspect]
     Indication: MULTIPLE MYELOMA
     Dosage: 40 MG DAY 1-4/ 14-17 PO
     Route: 048
  2. VINCRISTINE SULFATE [Suspect]
     Indication: MULTIPLE MYELOMA
     Dosage: 1.2 MG/M[2]/1X IV
     Route: 042
  3. DOXORUBICIN HCL [Suspect]
     Dosage: 50 MG/M[2]/1X IV
     Route: 042

REACTIONS (3)
  - DEEP VEIN THROMBOSIS [None]
  - INTESTINAL INFARCTION [None]
  - SEPSIS [None]
